FAERS Safety Report 10899242 (Version 2)
Quarter: 2015Q2

REPORT INFORMATION
  Report Type: Spontaneous
  Country: US (occurrence: US)
  Receive Date: 20150309
  Receipt Date: 20150416
  Transmission Date: 20150821
  Serious: Yes (Other)
  Sender: FDA-Public Use
  Company Number: US-PFIZER INC-2015082553

PATIENT
  Age: 51 Year
  Sex: Female

DRUGS (3)
  1. LIPITOR [Suspect]
     Active Substance: ATORVASTATIN CALCIUM
     Indication: BLOOD TRIGLYCERIDES INCREASED
  2. LIPITOR [Suspect]
     Active Substance: ATORVASTATIN CALCIUM
     Indication: BLOOD CHOLESTEROL INCREASED
     Dosage: 20 MG, 1X/DAY
     Route: 048
     Dates: start: 20020731, end: 200405
  3. VITAMIN D [Concomitant]
     Active Substance: CHOLECALCIFEROL
     Indication: BONE DISORDER
     Dosage: 800 MG, 2X/DAY
     Dates: start: 2000

REACTIONS (1)
  - Type 2 diabetes mellitus [Not Recovered/Not Resolved]

NARRATIVE: CASE EVENT DATE: 20030630
